FAERS Safety Report 15499114 (Version 1)
Quarter: 2018Q4

REPORT INFORMATION
  Report Type: Report from Study
  Country: US (occurrence: US)
  Receive Date: 20181015
  Receipt Date: 20181015
  Transmission Date: 20190205
  Serious: Yes (Other)
  Sender: FDA-Public Use
  Company Number: US-SHIRE-US201837842

PATIENT
  Sex: Female

DRUGS (1)
  1. HUMAN IMMUNOGLOBULIN; HYALURONIDASE [Suspect]
     Active Substance: HUMAN IMMUNOGLOBULIN G\HYALURONIDASE RECOMBINANT HUMAN
     Indication: PRIMARY IMMUNODEFICIENCY SYNDROME
     Dosage: 50 G, 1X A MONTH
     Route: 058

REACTIONS (7)
  - Muscle spasms [Unknown]
  - Inflammation [Unknown]
  - Pyrexia [Unknown]
  - Somnolence [Unknown]
  - Pain [Unknown]
  - Pneumonia [Unknown]
  - Blood creatine phosphokinase increased [Unknown]
